FAERS Safety Report 8175823-6 (Version None)
Quarter: 2012Q1

REPORT INFORMATION
  Report Type: 
  Country: None (occurrence: None)
  Receive Date: 20120228
  Receipt Date: 20120216
  Transmission Date: 20120608
  Serious: Yes (Disabling, Other)
  Sender: FDA-Public Use
  Company Number: 2012P1003740

PATIENT
  Age: 77 Year
  Sex: Male
  Weight: 88.4514 kg

DRUGS (1)
  1. CEFUROXIME SODIUM [Suspect]
     Indication: INFECTION PROPHYLAXIS
     Dosage: ;X1; IO
     Dates: start: 20111221, end: 20111221

REACTIONS (5)
  - EYE INFECTION [None]
  - VISUAL IMPAIRMENT [None]
  - STREPTOCOCCAL INFECTION [None]
  - TREATMENT NONCOMPLIANCE [None]
  - ENDOPHTHALMITIS [None]
